FAERS Safety Report 4417033-1 (Version None)
Quarter: 2004Q3

REPORT INFORMATION
  Report Type: 
  Country: None (occurrence: None)
  Receive Date: 20040806
  Receipt Date: 20040525
  Transmission Date: 20050211
  Serious: Yes (Hospitalization)
  Sender: FDA-Public Use
  Company Number: PHEH2004US05833

PATIENT
  Age: 78 Year
  Sex: Female
  Weight: 100 kg

DRUGS (14)
  1. GLEEVEC [Suspect]
     Indication: CHRONIC MYELOID LEUKAEMIA
     Dosage: 400 MG, QD
     Route: 048
     Dates: start: 20040415
  2. AVANDIA [Concomitant]
     Indication: DIABETES MELLITUS
     Dosage: 4 MG, QD
     Route: 048
  3. CRESTOR [Concomitant]
     Indication: BLOOD CHOLESTEROL
     Dosage: 10 MG, QD
  4. TOPAL [Concomitant]
     Indication: HYPERTENSION
  5. PRINZIDE [Concomitant]
     Indication: HYPERTENSION
     Dosage: 20/12.5 MG BID
     Route: 048
  6. LEVOTHYROXINE SODIUM [Concomitant]
     Dosage: .88 MG, QD
     Route: 048
  7. ESTRATEST H.S. [Concomitant]
     Dosage: UNK, QD
  8. TOPROL-XL [Concomitant]
     Dosage: 50 MG, QD
     Route: 048
  9. AMARYL [Concomitant]
     Dosage: 1 MG, QD
     Route: 048
  10. ASPIRIN [Concomitant]
     Dosage: 80 MG, QD
     Route: 048
  11. CALCIUM                                 /N/A/ [Concomitant]
     Route: 048
  12. PAXIL [Concomitant]
     Dosage: 20 MG, QD
     Route: 048
  13. DESFERAL [Concomitant]
     Dosage: 50 MG, HS PRN
  14. REMERON [Concomitant]
     Dosage: 15 MG, QD
     Route: 048

REACTIONS (6)
  - CELLULITIS [None]
  - ERYTHEMA [None]
  - FEELING COLD [None]
  - MYALGIA [None]
  - OEDEMA PERIPHERAL [None]
  - SKIN WARM [None]
